FAERS Safety Report 15555119 (Version 1)
Quarter: 2018Q4

REPORT INFORMATION
  Report Type: Spontaneous
  Country: US (occurrence: US)
  Receive Date: 20181022
  Receipt Date: 20181022
  Transmission Date: 20190205
  Serious: No
  Sender: FDA-Public Use
  Company Number: None

PATIENT
  Age: 59 Year
  Sex: Male

DRUGS (4)
  1. STELARA [Concomitant]
     Active Substance: USTEKINUMAB
  2. CYCLOSPORINE CAP 100MG MD [Suspect]
     Active Substance: CYCLOSPORINE
     Dosage: ?          OTHER DOSE:3 CAPSULES;?
     Route: 048
     Dates: start: 20180824
  3. OMEPRAZOLE. [Concomitant]
     Active Substance: OMEPRAZOLE
  4. DOXYCYCLINE. [Concomitant]
     Active Substance: DOXYCYCLINE

REACTIONS (3)
  - Drug effect decreased [None]
  - Psoriasis [None]
  - Condition aggravated [None]

NARRATIVE: CASE EVENT DATE: 20180824
